FAERS Safety Report 8398321-3 (Version None)
Quarter: 2012Q2

REPORT INFORMATION
  Report Type: 
  Country: None (occurrence: None)
  Receive Date: 20120524
  Receipt Date: 20120515
  Transmission Date: 20120825
  Serious: Yes (Other)
  Sender: FDA-Public Use
  Company Number: AUR-APL-2012-02307

PATIENT
  Age: 25 Year
  Sex: Female

DRUGS (2)
  1. TOPIRAMATE [Suspect]
     Indication: HEADACHE
  2. ANTI-GLAUCOMA MEDICATION (ANTIGLAUCOMA PREPARATIONS AND MIOTICS) [Concomitant]

REACTIONS (4)
  - MACULOPATHY [None]
  - CHOROIDAL EFFUSION [None]
  - ANGLE CLOSURE GLAUCOMA [None]
  - TOXICITY TO VARIOUS AGENTS [None]
